FAERS Safety Report 4400864-1 (Version None)
Quarter: 2004Q3

REPORT INFORMATION
  Report Type: 
  Country: None (occurrence: None)
  Receive Date: 20040907
  Receipt Date: 20030711
  Transmission Date: 20050211
  Serious: No
  Sender: FDA-Public Use
  Company Number: US-BRISTOL-MYERS SQUIBB COMPANY-12323408

PATIENT
  Age: 77 Year
  Sex: Female
  Weight: 78 kg

DRUGS (13)
  1. COUMADIN [Suspect]
     Indication: DEEP VEIN THROMBOSIS
     Route: 048
     Dates: start: 19990101
  2. LASIX [Concomitant]
  3. PRILOSEC [Concomitant]
  4. LIPITOR [Concomitant]
  5. NORVASC [Concomitant]
  6. NEURONTIN [Concomitant]
  7. CELEXA [Concomitant]
  8. TOPROL-XL [Concomitant]
  9. TRICOR [Concomitant]
  10. NITROGLYCERIN [Concomitant]
  11. XANAX [Concomitant]
  12. IRON SUPPLEMENT [Concomitant]
  13. ESTROVEN [Concomitant]

REACTIONS (2)
  - INTERNATIONAL NORMALISED RATIO INCREASED [None]
  - PROTHROMBIN TIME ABNORMAL [None]
